FAERS Safety Report 24580895 (Version 1)
Quarter: 2024Q4

REPORT INFORMATION
  Report Type: Spontaneous
  Country: CN (occurrence: CN)
  Receive Date: 20241105
  Receipt Date: 20241105
  Transmission Date: 20250115
  Serious: Yes (Life-Threatening, Other)
  Sender: BAYER HEALTHCARE PHARMACEUTICALS INC.
  Company Number: CN-BAYER-2024A157557

PATIENT
  Age: 73 Year
  Sex: Female
  Weight: 50 kg

DRUGS (1)
  1. AVELOX [Suspect]
     Active Substance: MOXIFLOXACIN HYDROCHLORIDE
     Indication: Infectious pleural effusion
     Dosage: 0.4 G, QD
     Route: 041
     Dates: start: 20241007, end: 20241007

REACTIONS (10)
  - Confusional state [Recovered/Resolved]
  - Blood pressure increased [Recovered/Resolved]
  - Pruritus [None]
  - Chest discomfort [Recovering/Resolving]
  - Mouth breathing [None]
  - Cold sweat [None]
  - Respiratory rate increased [Recovered/Resolved]
  - Oxygen saturation decreased [Recovered/Resolved]
  - Product prescribing issue [None]
  - Product use in unapproved indication [None]

NARRATIVE: CASE EVENT DATE: 20241007
